FAERS Safety Report 18356504 (Version 3)
Quarter: 2020Q4

REPORT INFORMATION
  Report Type: Spontaneous
  Country: JO (occurrence: JO)
  Receive Date: 20201007
  Receipt Date: 20201122
  Transmission Date: 20210114
  Serious: Yes (Other)
  Sender: FDA-Public Use
  Company Number: JO-JNJFOC-20200953494

PATIENT
  Age: 22 Year
  Sex: Male
  Weight: 45 kg

DRUGS (5)
  1. STELARA [Suspect]
     Active Substance: USTEKINUMAB
     Indication: CROHN^S DISEASE
     Route: 042
     Dates: start: 201910
  2. IMURAN [Concomitant]
     Active Substance: AZATHIOPRINE
  3. PENTASA [Concomitant]
     Active Substance: MESALAMINE
  4. STELARA [Suspect]
     Active Substance: USTEKINUMAB
     Route: 058
     Dates: start: 201912
  5. STELARA [Suspect]
     Active Substance: USTEKINUMAB
     Route: 058
     Dates: start: 2019

REACTIONS (5)
  - Drug ineffective [Unknown]
  - Off label use [Unknown]
  - Mucosal ulceration [Not Recovered/Not Resolved]
  - Intestinal stenosis [Not Recovered/Not Resolved]
  - Incorrect dose administered [Unknown]

NARRATIVE: CASE EVENT DATE: 202009
